FAERS Safety Report 9466384 (Version 1)
Quarter: 2013Q3

REPORT INFORMATION
  Report Type: Spontaneous
  Country: US (occurrence: None)
  Receive Date: 20130816
  Receipt Date: 20130816
  Transmission Date: 20140515
  Serious: Yes (Hospitalization)
  Sender: FDA-Public Use
  Company Number: None

PATIENT
  Age: 47 Year
  Sex: Male
  Weight: 75 kg

DRUGS (3)
  1. REMICADE [Suspect]
     Indication: RHEUMATOID ARTHRITIS
     Dosage: 3 MG/KG INTRAVENOUS?LAST DOSE 02/20/2013
     Route: 042
     Dates: end: 20130220
  2. REMICADE [Suspect]
     Dosage: 3 MG/KG INTRAVENOUS?LAST DOSE 02/20/2013
     Route: 042
     Dates: end: 20130220
  3. LIDOCAINE [Concomitant]

REACTIONS (4)
  - Coccidioidomycosis [None]
  - Urinary retention [None]
  - Extradural abscess [None]
  - Intraspinal abscess [None]
